FAERS Safety Report 7718713-2 (Version None)
Quarter: 2011Q3

REPORT INFORMATION
  Report Type: 
  Country: None (occurrence: None)
  Receive Date: 20110830
  Receipt Date: 20110824
  Transmission Date: 20111222
  Serious: Yes (Other)
  Sender: FDA-Public Use
  Company Number: US-BAYER-2011-075793

PATIENT
  Age: 28 Year
  Sex: Female

DRUGS (2)
  1. ALL OTHER THERAPEUTIC PRODUCTS [Concomitant]
  2. NEXAVAR [Suspect]
     Indication: SARCOMA
     Dosage: 400 MG, BID
     Route: 048
     Dates: start: 20110809

REACTIONS (6)
  - NAUSEA [None]
  - FATIGUE [None]
  - OESOPHAGEAL SPASM [None]
  - RASH PAPULAR [None]
  - MALNUTRITION [None]
  - VOMITING [None]
